FAERS Safety Report 8377393-6 (Version None)
Quarter: 2012Q2

REPORT INFORMATION
  Report Type: 
  Country: None (occurrence: None)
  Receive Date: 20120521
  Receipt Date: 20120507
  Transmission Date: 20120825
  Serious: Yes (Hospitalization, Other)
  Sender: FDA-Public Use
  Company Number: 2012P1022214

PATIENT
  Age: 44 Year
  Sex: Male
  Weight: 140.6151 kg

DRUGS (10)
  1. FENTANYL-50 [Suspect]
     Indication: BACK PAIN
     Dosage: 1 PATCH;Q48H,50 MCG, TDER
     Route: 062
     Dates: start: 20100101
  2. FENTANYL-50 [Suspect]
     Indication: SPINAL FUSION SURGERY
     Dosage: 1 PATCH;Q48H,50 MCG, TDER
     Route: 062
     Dates: start: 20100101
  3. FENTANYL-100 [Suspect]
     Indication: SPINAL FUSION SURGERY
     Dosage: 1 PATCH;100;50 MCG/HR Q48H, TDER
     Route: 062
     Dates: start: 20070101
  4. FENTANYL-100 [Suspect]
     Indication: BACK PAIN
     Dosage: 1 PATCH;100;50 MCG/HR Q48H, TDER
     Route: 062
     Dates: start: 20070101
  5. FENTANYL-50 [Suspect]
     Indication: INFUSION
     Dosage: 1 PATCH;Q48H,50 MCG/HR, TDER
     Route: 062
     Dates: start: 20070101
  6. FENTANYL-50 [Suspect]
     Indication: BACK PAIN
     Dosage: 1 PATCH;Q48H,50 MCG/HR, TDER
     Route: 062
     Dates: start: 20070101
  7. FENTANYL-100 [Suspect]
     Indication: SPINAL FUSION SURGERY
     Dosage: 1 PATCH;Q48H, 100 MCG/HRTDER
     Route: 062
     Dates: start: 20120410
  8. FENTANYL-100 [Suspect]
     Indication: BACK PAIN
     Dosage: 1 PATCH;Q48H, 100 MCG/HRTDER
     Route: 062
     Dates: start: 20120410
  9. ANTI-SEIZURES MEDICATION [Concomitant]
  10. BLOOD PRESSURE MEDICATION [Concomitant]

REACTIONS (9)
  - AMNESIA [None]
  - DRUG WITHDRAWAL SYNDROME [None]
  - APPLICATION SITE EXFOLIATION [None]
  - APPLICATION SITE ERYTHEMA [None]
  - LOSS OF CONSCIOUSNESS [None]
  - APPLICATION SITE SCAB [None]
  - CONVULSION [None]
  - CEREBROVASCULAR ACCIDENT [None]
  - APPLICATION SITE PRURITUS [None]
